FAERS Safety Report 7932644-4 (Version None)
Quarter: 2011Q4

REPORT INFORMATION
  Report Type: 
  Country: None (occurrence: None)
  Receive Date: 20111122
  Receipt Date: 20111118
  Transmission Date: 20120403
  Serious: Yes (Death, Hospitalization, Other)
  Sender: FDA-Public Use
  Company Number: US-BRISTOL-MYERS SQUIBB COMPANY-16016362

PATIENT
  Age: 75 Year
  Sex: Male
  Weight: 68 kg

DRUGS (1)
  1. IPILIMUMAB [Suspect]
     Indication: MALIGNANT MELANOMA
     Dosage: 07JUN11 (710 MG),06JUL11(690 MG),03AUG11(680 MG),NO. COURSES 3,REMOVED PROTOCOL 16AUG11
     Route: 042
     Dates: start: 20110607

REACTIONS (6)
  - NEOPLASM MALIGNANT [None]
  - MUSCULAR WEAKNESS [None]
  - LOWER GASTROINTESTINAL HAEMORRHAGE [None]
  - RASH MACULO-PAPULAR [None]
  - DIARRHOEA [None]
  - NEOPLASM PROGRESSION [None]
